FAERS Safety Report 19266528 (Version 2)
Quarter: 2021Q3

REPORT INFORMATION
  Report Type: Spontaneous
  Country: CN (occurrence: CN)
  Receive Date: 20210518
  Receipt Date: 20210728
  Transmission Date: 20211014
  Serious: Yes (Other)
  Sender: FDA-Public Use
  Company Number: CN-ROCHE-2831779

PATIENT
  Age: 35 Year
  Sex: Female

DRUGS (11)
  1. KADCYLA [Suspect]
     Active Substance: ADO-TRASTUZUMAB EMTANSINE
     Indication: BREAST CANCER
     Route: 065
     Dates: start: 20201224
  2. KADCYLA [Suspect]
     Active Substance: ADO-TRASTUZUMAB EMTANSINE
     Dosage: TREATMENT DATES: ON 15/JAN/2021 AND 05/FEB/2021
     Route: 065
     Dates: start: 20210205
  3. PERJETA [Suspect]
     Active Substance: PERTUZUMAB
     Dosage: FOR 3 CYCLES OF TCBHP REGIMEN.
     Route: 065
  4. DOCETAXEL. [Concomitant]
     Active Substance: DOCETAXEL
     Indication: BREAST CANCER
     Dosage: FOR 3 CYCLES OF TCBHP REGIMEN, AT 130MG ON DAY 1
     Dates: start: 20200710
  5. KADCYLA [Suspect]
     Active Substance: ADO-TRASTUZUMAB EMTANSINE
     Dosage: TREATMENT DATES: ON 15/JAN/2021 AND 05/FEB/2021
     Route: 065
     Dates: start: 20210115
  6. CARBOPLATIN. [Concomitant]
     Active Substance: CARBOPLATIN
     Indication: BREAST CANCER
     Dosage: FOR 3 CYCLES OF TCBHP REGIMEN, AT 700MG AT DAY 1
     Dates: start: 20200710
  7. GOSERELIN ACETATE [Concomitant]
     Active Substance: GOSERELIN ACETATE
     Indication: BREAST CANCER
     Dates: start: 20210121
  8. HERCEPTIN [Suspect]
     Active Substance: TRASTUZUMAB
     Indication: BREAST CANCER
     Dosage: FOR 3 CYCLES OF TCBHP REGIMEN, FIRST DOSE WAS 520MG, FOLLOWED BY 390MG
     Route: 065
     Dates: start: 20200710
  9. PACLITAXEL ALBUMIN [Concomitant]
     Active Substance: PACLITAXEL
     Indication: BREAST CANCER
     Dosage: FOR 3 CYCLES OF TCBHP REGIMEN, AT 130MG ON DAY 1
  10. PERJETA [Suspect]
     Active Substance: PERTUZUMAB
     Indication: BREAST CANCER
     Dosage: FOR 3 CYCLES OF TCBHP REGIMEN,FIRST DOSE WAS 840MG, FOLLOWED BY 420MG
     Route: 065
     Dates: start: 20200710
  11. HERCEPTIN [Suspect]
     Active Substance: TRASTUZUMAB
     Dosage: FOR 3 CYCLES OF TCBHP REGIMEN
     Route: 065

REACTIONS (2)
  - Myelosuppression [Recovered/Resolved]
  - Thrombocytopenia [Recovered/Resolved]

NARRATIVE: CASE EVENT DATE: 20201230
